FAERS Safety Report 19503091 (Version 11)
Quarter: 2023Q2

REPORT INFORMATION
  Report Type: Report from Study
  Country: IN (occurrence: IN)
  Receive Date: 20210707
  Receipt Date: 20230614
  Transmission Date: 20230722
  Serious: Yes (Hospitalization)
  Sender: FDA-Public Use
  Company Number: IN-002147023-PHHY2018IN069719

PATIENT

DRUGS (15)
  1. RUXOLITINIB [Suspect]
     Active Substance: RUXOLITINIB
     Indication: Polycythaemia vera
     Dosage: 5 MG, BID
     Route: 048
     Dates: start: 20180611, end: 20180706
  2. RUXOLITINIB [Suspect]
     Active Substance: RUXOLITINIB
     Indication: Primary myelofibrosis
     Dosage: 5 MG, BID
     Route: 048
     Dates: start: 20180611, end: 20201203
  3. RUXOLITINIB [Suspect]
     Active Substance: RUXOLITINIB
     Dosage: 12.5 MG (5 MG IN MORNING AND 7.5 MG IN EVENING)
     Route: 048
     Dates: start: 20180706, end: 20181107
  4. RUXOLITINIB [Suspect]
     Active Substance: RUXOLITINIB
     Dosage: 5 MG, BID
     Route: 048
     Dates: start: 20181108, end: 20201203
  5. RUXOLITINIB [Suspect]
     Active Substance: RUXOLITINIB
     Dosage: 5 MG OD AND 5 MG BID ALTERNATE DAYS
     Route: 048
     Dates: start: 20201204, end: 20220210
  6. RUXOLITINIB [Suspect]
     Active Substance: RUXOLITINIB
     Dosage: 5MG OD AND 5MG BD ON ALTERNATE DAYS
     Route: 048
     Dates: start: 20220211, end: 20220401
  7. RUXOLITINIB [Suspect]
     Active Substance: RUXOLITINIB
     Dosage: 5 MG, OTHER (5MG OD + 5MG BD ON ALTERNATE DAYS)
     Route: 048
     Dates: start: 20220402, end: 20220628
  8. RUXOLITINIB [Suspect]
     Active Substance: RUXOLITINIB
     Dosage: 5 MG OD AND 5 MG BD ON ALTERNATE DAYS
     Route: 048
     Dates: start: 20220629, end: 20220816
  9. RUXOLITINIB [Suspect]
     Active Substance: RUXOLITINIB
     Dosage: 5 MG OD AND 5 MG BD ON ALTERNATE DAYS
     Route: 048
     Dates: start: 20220817
  10. RUXOLITINIB [Suspect]
     Active Substance: RUXOLITINIB
     Dosage: 5 MG OD AND 5 MG BD ON ALTERNATE DAYS
     Route: 048
     Dates: start: 20220930
  11. RUXOLITINIB [Suspect]
     Active Substance: RUXOLITINIB
     Dosage: UNK (5MG OD AND 5MG BD ON ALTERNATE DAYS)
     Route: 065
     Dates: start: 20221118
  12. RUXOLITINIB [Suspect]
     Active Substance: RUXOLITINIB
     Dosage: 5 MG, OTHER (5MG OD AND 5MG BD ON ALTERNATE DAYS)
     Route: 065
     Dates: start: 20230106
  13. RUXOLITINIB [Suspect]
     Active Substance: RUXOLITINIB
     Dosage: 5 MG OTHER, (5 MG OD AND 5MG BD ON ALTERNATE DAYS)
     Route: 065
     Dates: start: 20230301
  14. RUXOLITINIB [Suspect]
     Active Substance: RUXOLITINIB
     Dosage: 5 MG OTHER, (5 MG OD AND 5MG BD ON ALTERNATE DAYS)
     Route: 048
     Dates: start: 20230417
  15. RUXOLITINIB [Suspect]
     Active Substance: RUXOLITINIB
     Dosage: 5 MG OTHER, (5 MG OD AND 5MG BD ON ALTERNATE DAYS)
     Route: 048
     Dates: start: 20230529

REACTIONS (4)
  - Wrong technique in product usage process [Unknown]
  - Tongue disorder [Recovered/Resolved]
  - Inappropriate schedule of product administration [Unknown]
  - Full blood count abnormal [Not Recovered/Not Resolved]

NARRATIVE: CASE EVENT DATE: 20180706
